FAERS Safety Report 4323825-X (Version None)
Quarter: 2004Q1

REPORT INFORMATION
  Report Type: 
  Country: None (occurrence: None)
  Receive Date: 20040323
  Receipt Date: 20040309
  Transmission Date: 20041129
  Serious: Yes (Hospitalization)
  Sender: FDA-Public Use
  Company Number: K200400342

PATIENT
  Age: 63 Year
  Sex: Female
  Weight: 59.9 kg

DRUGS (13)
  1. LEVOXYL (LEVOTHYROXINE) TABLET, 75MCG [Suspect]
     Indication: HYPOTHYROIDISM
     Dosage: SEE IMAGE
     Route: 048
     Dates: start: 20031122, end: 20031212
  2. LEVOXYL (LEVOTHYROXINE) TABLET, 75MCG [Suspect]
     Indication: HYPOTHYROIDISM
     Dosage: SEE IMAGE
     Route: 048
     Dates: start: 20031213, end: 20040201
  3. LEVOXYL (LEVOTHYROXINE) TABLET, 75MCG [Suspect]
     Indication: HYPOTHYROIDISM
     Dosage: SEE IMAGE
     Route: 048
     Dates: start: 20040224
  4. TENORMIN [Concomitant]
  5. NEXIUM [Concomitant]
  6. WELCHOL [Concomitant]
  7. CELEXA [Concomitant]
  8. XANAX [Concomitant]
  9. FLEXERIL [Concomitant]
  10. SOY PILL [Concomitant]
  11. VITAMIN B 50 [Concomitant]
  12. VITAMIN C (ASCORBIC ACID) [Concomitant]
  13. VITAMIN E [Concomitant]

REACTIONS (19)
  - ANOREXIA [None]
  - ANURIA [None]
  - ASPARTATE AMINOTRANSFERASE INCREASED [None]
  - ASTHENIA [None]
  - BLOOD CALCIUM DECREASED [None]
  - BLOOD PRESSURE DECREASED [None]
  - BONE PAIN [None]
  - DEHYDRATION [None]
  - DIARRHOEA [None]
  - DYSPNOEA [None]
  - FATIGUE [None]
  - FEELING JITTERY [None]
  - GRANULOCYTE COUNT DECREASED [None]
  - HEART RATE DECREASED [None]
  - NAUSEA [None]
  - RED BLOOD CELL COUNT DECREASED [None]
  - RED BLOOD CELL SEDIMENTATION RATE INCREASED [None]
  - VOMITING [None]
  - WEIGHT INCREASED [None]
